FAERS Safety Report 5752038-X (Version None)
Quarter: 2008Q2

REPORT INFORMATION
  Report Type: 
  Country: None (occurrence: None)
  Receive Date: 20080529
  Receipt Date: 20080523
  Transmission Date: 20081010
  Serious: Yes (Other)
  Sender: FDA-Public Use
  Company Number: US-BAYER-200810758BCC

PATIENT
  Age: 35 Year
  Sex: Female
  Weight: 50 kg

DRUGS (3)
  1. ASPIRIN [Suspect]
     Indication: MIGRAINE
     Route: 048
  2. UNKNOWN ANTIBIOTIC [Concomitant]
  3. UNKNOWN MIGRAINE HEADACHE MEDICINE [Concomitant]

REACTIONS (1)
  - GASTRIC ULCER [None]
